FAERS Safety Report 20391003 (Version 9)
Quarter: 2022Q2

REPORT INFORMATION
  Report Type: Spontaneous
  Country: US (occurrence: US)
  Receive Date: 20220128
  Receipt Date: 20220408
  Transmission Date: 20220721
  Serious: Yes (Hospitalization)
  Sender: FDA-Public Use
  Company Number: US-UNITED THERAPEUTICS-UNT-2022-001767

PATIENT
  Age: 81 Year
  Sex: Female
  Weight: 76.599 kg

DRUGS (14)
  1. TYVASO [Suspect]
     Active Substance: TREPROSTINIL
     Indication: Pulmonary arterial hypertension
     Dosage: UNK
     Dates: start: 20220118
  2. TYVASO [Suspect]
     Active Substance: TREPROSTINIL
     Dosage: 18-72 ?G, QID
     Dates: start: 202201
  3. TYVASO [Suspect]
     Active Substance: TREPROSTINIL
     Dosage: 18 ?G
     Dates: start: 202201, end: 202201
  4. TYVASO [Suspect]
     Active Substance: TREPROSTINIL
     Dosage: 12 ?G
     Dates: start: 202201
  5. TYVASO [Suspect]
     Active Substance: TREPROSTINIL
     Dosage: UNK
  6. TYVASO [Suspect]
     Active Substance: TREPROSTINIL
     Dosage: 18 ?G
     Dates: end: 20220211
  7. TYVASO [Suspect]
     Active Substance: TREPROSTINIL
     Dosage: 36 ?G
     Dates: start: 20220211, end: 202202
  8. TYVASO [Suspect]
     Active Substance: TREPROSTINIL
     Dosage: 54 ?G
     Dates: start: 202202, end: 20220228
  9. TYVASO [Suspect]
     Active Substance: TREPROSTINIL
     Dosage: 72 ?G
     Dates: start: 20220228
  10. TYVASO [Suspect]
     Active Substance: TREPROSTINIL
     Dosage: UNK
  11. OPSUMIT [Suspect]
     Active Substance: MACITENTAN
     Indication: Pulmonary arterial hypertension
     Dosage: 10 MG, QD
     Route: 048
  12. SILDENAFIL CITRATE [Concomitant]
     Active Substance: SILDENAFIL CITRATE
     Indication: Product used for unknown indication
     Dosage: UNK
     Route: 065
  13. ELIQUIS [Concomitant]
     Active Substance: APIXABAN
     Indication: Product used for unknown indication
     Dosage: UNK
     Route: 065
  14. ADEMPAS [Concomitant]
     Active Substance: RIOCIGUAT
     Indication: Product used for unknown indication
     Dosage: UNK
     Route: 065

REACTIONS (10)
  - Oxygen saturation decreased [Unknown]
  - Heart rate increased [Unknown]
  - Dizziness [Unknown]
  - Feeling abnormal [Unknown]
  - Nausea [Unknown]
  - Fluid retention [Unknown]
  - Dyspnoea [Unknown]
  - Nasal congestion [Unknown]
  - Headache [Unknown]
  - Diarrhoea [Unknown]

NARRATIVE: CASE EVENT DATE: 20220101
